FAERS Safety Report 5116242-6 (Version None)
Quarter: 2006Q3

REPORT INFORMATION
  Report Type: 
  Country: None (occurrence: None)
  Receive Date: 20060927
  Receipt Date: 20060717
  Transmission Date: 20061208
  Serious: Yes (Hospitalization)
  Sender: FDA-Public Use
  Company Number: JP-GLAXOSMITHKLINE-B0432126A

PATIENT
  Age: 83 Year
  Sex: Female

DRUGS (5)
  1. PAROXETINE HCL [Suspect]
     Indication: DEPRESSION
     Dosage: 20MG SINGLE DOSE
     Route: 065
     Dates: start: 20050711
  2. OMEPRAZOLE [Concomitant]
     Dosage: 10MG PER DAY
     Route: 065
  3. BENIDIPINE HYDROCHLORIDE [Concomitant]
     Dosage: 2MG TWICE PER DAY
     Route: 065
  4. ALFACALCIDOL [Concomitant]
     Dosage: 1MCG PER DAY
     Route: 065
  5. RISEDRONATE [Concomitant]
     Dosage: 2.5MG PER DAY
     Route: 065

REACTIONS (21)
  - ANOREXIA [None]
  - BLOOD ANTIDIURETIC HORMONE INCREASED [None]
  - BLOOD OSMOLARITY ABNORMAL [None]
  - BLOOD PARATHYROID HORMONE INCREASED [None]
  - BRAIN NATRIURETIC PEPTIDE INCREASED [None]
  - DEPRESSED LEVEL OF CONSCIOUSNESS [None]
  - DYSSTASIA [None]
  - FANCONI SYNDROME [None]
  - FATIGUE [None]
  - GLYCOSURIA [None]
  - HEADACHE [None]
  - HYPOCALCAEMIA [None]
  - HYPOCHLORAEMIA [None]
  - HYPOKALAEMIA [None]
  - HYPONATRAEMIA [None]
  - HYPOPHOSPHATAEMIA [None]
  - HYPOURICAEMIA [None]
  - INAPPROPRIATE ANTIDIURETIC HORMONE SECRETION [None]
  - RENAL TUBULAR DISORDER [None]
  - SOMNOLENCE [None]
  - URINE SODIUM INCREASED [None]
